FAERS Safety Report 6096253-7 (Version None)
Quarter: 2009Q1

REPORT INFORMATION
  Report Type: 
  Country: None (occurrence: None)
  Receive Date: 20090227
  Receipt Date: 20081021
  Transmission Date: 20090719
  Serious: Yes (Life-Threatening, Hospitalization)
  Sender: FDA-Public Use
  Company Number: A0752810A

PATIENT
  Sex: Female

DRUGS (3)
  1. LAMICTAL [Suspect]
     Dosage: 25MG UNKNOWN
     Route: 065
     Dates: start: 20080915
  2. ABILIFY [Concomitant]
  3. ADDERALL 10 [Concomitant]

REACTIONS (1)
  - STEVENS-JOHNSON SYNDROME [None]
